FAERS Safety Report 11064997 (Version 2)
Quarter: 2015Q2

REPORT INFORMATION
  Report Type: Spontaneous
  Country: US (occurrence: US)
  Receive Date: 20150424
  Receipt Date: 20150524
  Transmission Date: 20150821
  Serious: No
  Sender: FDA-Public Use
  Company Number: US-JNJFOC-20140717156

PATIENT
  Sex: Female

DRUGS (1)
  1. CONCERTA [Suspect]
     Active Substance: METHYLPHENIDATE HYDROCHLORIDE
     Indication: ATTENTION DEFICIT/HYPERACTIVITY DISORDER
     Route: 048

REACTIONS (7)
  - Migraine [Unknown]
  - Wrong technique in drug usage process [Not Recovered/Not Resolved]
  - Malaise [Unknown]
  - Palpitations [Unknown]
  - Nausea [Unknown]
  - Drug dose omission [Unknown]
  - Nervousness [Unknown]
